FAERS Safety Report 4953800-3 (Version None)
Quarter: 2006Q1

REPORT INFORMATION
  Report Type: 
  Country: None (occurrence: None)
  Receive Date: 20060321
  Receipt Date: 20060309
  Transmission Date: 20060701
  Serious: Yes (Hospitalization)
  Sender: FDA-Public Use
  Company Number: 2006PV010197

PATIENT
  Age: 56 Year
  Sex: Female

DRUGS (1)
  1. BYETTA [Suspect]
     Dosage: 10 MCG; SC
     Route: 058
     Dates: start: 20051201, end: 20060301

REACTIONS (3)
  - ILEUS [None]
  - NAUSEA [None]
  - VOMITING PROJECTILE [None]
